FAERS Safety Report 4859126-0 (Version None)
Quarter: 2005Q4

REPORT INFORMATION
  Report Type: 
  Country: None (occurrence: None)
  Receive Date: 20051219
  Receipt Date: 20050919
  Transmission Date: 20060501
  Serious: No
  Sender: FDA-Public Use
  Company Number: US-GLAXOSMITHKLINE-A0574747A

PATIENT
  Age: 54 Year
  Sex: Female
  Weight: 62 kg

DRUGS (4)
  1. NICODERM CQ [Suspect]
  2. PREDNISONE TAB [Concomitant]
  3. AUGMENTIN [Concomitant]
  4. DIFLUCAN [Concomitant]

REACTIONS (2)
  - COAGULATION TIME PROLONGED [None]
  - INTENTIONAL DRUG MISUSE [None]
